FAERS Safety Report 22063839 (Version 1)
Quarter: 2023Q1

REPORT INFORMATION
  Report Type: Report from Study
  Country: BR (occurrence: BR)
  Receive Date: 20230306
  Receipt Date: 20230306
  Transmission Date: 20230417
  Serious: Yes (Death, Other)
  Sender: FDA-Public Use
  Company Number: BR-002147023-NVSC2023BR049999

PATIENT
  Age: 55 Year
  Sex: Female

DRUGS (1)
  1. KISQALI [Suspect]
     Active Substance: RIBOCICLIB
     Indication: Product used for unknown indication
     Dosage: UNK
     Route: 065

REACTIONS (2)
  - Death [Fatal]
  - Metastasis [Unknown]

NARRATIVE: CASE EVENT DATE: 20230208
